FAERS Safety Report 24386910 (Version 5)
Quarter: 2024Q4

REPORT INFORMATION
  Report Type: Spontaneous
  Country: US (occurrence: US)
  Receive Date: 20241002
  Receipt Date: 20241218
  Transmission Date: 20250115
  Serious: Yes (Hospitalization)
  Sender: ABBVIE
  Company Number: US-ABBVIE-5946908

PATIENT
  Age: 49 Year
  Sex: Female
  Weight: 62 kg

DRUGS (11)
  1. SYNTHROID [Suspect]
     Active Substance: LEVOTHYROXINE SODIUM
     Indication: Uterine leiomyoma
     Route: 048
     Dates: start: 202309
  2. ASPIRIN [Concomitant]
     Active Substance: ASPIRIN
     Indication: Prophylaxis
     Route: 048
     Dates: start: 202409
  3. UNISOM SLEEPTABS [Concomitant]
     Active Substance: DOXYLAMINE SUCCINATE
     Indication: Morning sickness
  4. METOPROLOL TARTRATE [Concomitant]
     Active Substance: METOPROLOL TARTRATE
     Indication: Hypertension
     Dosage: FREQUENCY: AS NEEDED (PRN)
     Route: 048
     Dates: start: 20240502
  5. VITAMINS [Concomitant]
     Active Substance: VITAMINS
     Indication: Supplementation therapy
     Route: 048
     Dates: start: 202307
  6. FOLIC ACID [Concomitant]
     Active Substance: FOLIC ACID
     Indication: Product used for unknown indication
  7. VITAMIN D NOS [Concomitant]
     Active Substance: CHOLECALCIFEROL\ERGOCALCIFEROL
     Indication: Supplementation therapy
     Route: 048
     Dates: start: 202307
  8. MAGNESIUM [Concomitant]
     Active Substance: MAGNESIUM
     Indication: Supplementation therapy
     Route: 048
     Dates: start: 202307
  9. IRON [Concomitant]
     Active Substance: IRON
     Indication: Supplementation therapy
     Route: 048
     Dates: start: 202307
  10. VITAMIN B6 [Concomitant]
     Active Substance: PYRIDOXINE HYDROCHLORIDE
     Indication: Morning sickness
  11. FAMOTIDINE [Concomitant]
     Active Substance: FAMOTIDINE
     Indication: Gastrooesophageal reflux disease
     Dosage: 40 MG/5 ML
     Route: 048
     Dates: start: 20240731, end: 20240930

REACTIONS (8)
  - Ear pain [Recovered/Resolved with Sequelae]
  - Uterine leiomyoma [Not Recovered/Not Resolved]
  - Maternal exposure during pregnancy [Unknown]
  - Fibroadenoma of breast [Not Recovered/Not Resolved]
  - Hypothyroidism [Not Recovered/Not Resolved]
  - Live birth [Unknown]
  - Postural orthostatic tachycardia syndrome [Recovered/Resolved]
  - Heart rate increased [Not Recovered/Not Resolved]

NARRATIVE: CASE EVENT DATE: 20231025
